FAERS Safety Report 24101165 (Version 1)
Quarter: 2024Q3

REPORT INFORMATION
  Report Type: Spontaneous
  Country: US (occurrence: US)
  Receive Date: 20240717
  Receipt Date: 20240717
  Transmission Date: 20241016
  Serious: Yes (Other)
  Sender: ABBVIE
  Company Number: US-ABBVIE-5840244

PATIENT
  Age: 33 Year
  Sex: Female

DRUGS (2)
  1. GLECAPREVIR\PIBRENTASVIR [Interacting]
     Active Substance: GLECAPREVIR\PIBRENTASVIR
     Indication: Hepatitis B surface antigen negative
     Dosage: 100 MG/40 MG
     Route: 048
  2. ETHINYL ESTRADIOL\NORGESTREL [Interacting]
     Active Substance: ETHINYL ESTRADIOL\NORGESTREL
     Indication: Hepatitis B surface antigen negative
     Dosage: 30 MCG/0.3 MG
     Route: 065

REACTIONS (2)
  - Drug-induced liver injury [Recovered/Resolved]
  - Drug interaction [Unknown]
